FAERS Safety Report 21903598 (Version 1)
Quarter: 2023Q1

REPORT INFORMATION
  Report Type: Spontaneous
  Country: US (occurrence: US)
  Receive Date: 20230124
  Receipt Date: 20230124
  Transmission Date: 20230417
  Serious: Yes (Other)
  Sender: FDA-Public Use
  Company Number: US-002147023-NVSC2023US011831

PATIENT
  Sex: Male

DRUGS (1)
  1. TRIESENCE [Suspect]
     Active Substance: TRIAMCINOLONE ACETONIDE
     Indication: Product used for unknown indication
     Dosage: UNK (USED FOR OVER 2 YEARS) (EVERY 12-13 WEEKS)
     Route: 042

REACTIONS (6)
  - Blindness unilateral [Unknown]
  - Retinal detachment [Unknown]
  - Visual impairment [Unknown]
  - Eye inflammation [Unknown]
  - Product availability issue [Unknown]
  - Incorrect route of product administration [Unknown]
